FAERS Safety Report 7961930-7 (Version None)
Quarter: 2011Q4

REPORT INFORMATION
  Report Type: 
  Country: None (occurrence: None)
  Receive Date: 20111207
  Receipt Date: 20111128
  Transmission Date: 20120403
  Serious: Yes (Hospitalization, Other)
  Sender: FDA-Public Use
  Company Number: CA-ELI_LILLY_AND_COMPANY-CA201109006593

PATIENT
  Age: 28 Year
  Sex: Female
  Weight: 90 kg

DRUGS (3)
  1. ADCIRCA [Suspect]
     Indication: PULMONARY ARTERIAL HYPERTENSION
     Dosage: 40 MG, QD
     Route: 048
     Dates: start: 20110601
  2. BOSENTAN [Concomitant]
  3. COUMADIN [Concomitant]

REACTIONS (3)
  - ABORTION INDUCED [None]
  - GENERAL PHYSICAL HEALTH DETERIORATION [None]
  - MATERNAL EXPOSURE DURING PREGNANCY [None]
